FAERS Safety Report 9004467 (Version 1)
Quarter: 2013Q1

REPORT INFORMATION
  Report Type: Spontaneous
  Country: US (occurrence: US)
  Receive Date: 20130108
  Receipt Date: 20130108
  Transmission Date: 20140127
  Serious: Yes (Death, Hospitalization)
  Sender: FDA-Public Use
  Company Number: US-BAYER-2013-001877

PATIENT
  Age: 32 Year
  Sex: Male

DRUGS (6)
  1. DIPHENHYDRAMINE HYDROCHLORIDE [Suspect]
  2. DIPHENHYDRAMINE HYDROCHLORIDE [Suspect]
     Dosage: 50 MG, UNK
  3. EPINEPHRINE [Concomitant]
     Indication: ANAPHYLACTOID REACTION
     Dosage: 0.3 MG, ONCE
  4. HALOPERIDOL [Concomitant]
  5. VALPROIC ACID [Concomitant]
  6. COCAINE [Concomitant]

REACTIONS (12)
  - Toxicity to various agents [Fatal]
  - Intentional overdose [None]
  - Convulsion [Recovered/Resolved]
  - Coma [Recovered/Resolved]
  - Acidosis [Not Recovered/Not Resolved]
  - Electrocardiogram QRS complex prolonged [Recovering/Resolving]
  - Tachycardia [None]
  - Hyperkalaemia [Not Recovered/Not Resolved]
  - Blood creatine phosphokinase increased [Not Recovered/Not Resolved]
  - Compartment syndrome [Not Recovered/Not Resolved]
  - Hepatic enzyme increased [Recovering/Resolving]
  - Brain injury [Not Recovered/Not Resolved]
